FAERS Safety Report 10428445 (Version 1)
Quarter: 2014Q3

REPORT INFORMATION
  Report Type: Spontaneous
  Country: IT (occurrence: IT)
  Receive Date: 20140903
  Receipt Date: 20140903
  Transmission Date: 20150326
  Serious: Yes (Hospitalization)
  Sender: FDA-Public Use
  Company Number: IT-GLAXOSMITHKLINE-B1029434A

PATIENT
  Age: 73 Year
  Sex: Female

DRUGS (11)
  1. UNKNOWN DRUG [Concomitant]
     Active Substance: UNSPECIFIED INGREDIENT
     Indication: GOUT
  2. BETABLOCKER [Concomitant]
     Indication: HYPERTENSION
  3. ENOXAPARINA [Concomitant]
     Active Substance: ENOXAPARIN
     Indication: THROMBOSIS PROPHYLAXIS
     Route: 058
  4. CORTICOSTEROID [Concomitant]
     Active Substance: CORTICOSTEROID NOS
  5. AMIODARONE [Concomitant]
     Active Substance: AMIODARONE
  6. VOTRIENT [Suspect]
     Active Substance: PAZOPANIB HYDROCHLORIDE
     Indication: CLEAR CELL RENAL CELL CARCINOMA
     Dosage: 800MG PER DAY
     Route: 048
     Dates: start: 20140423, end: 20140523
  7. NITROGLICERINA [Concomitant]
     Active Substance: NITROGLYCERIN
     Indication: VASODILATATION
     Route: 062
  8. DIURETIC [Concomitant]
     Active Substance: UNSPECIFIED INGREDIENT
  9. EUTIROX [Concomitant]
     Active Substance: LEVOTHYROXINE SODIUM
  10. INSULIN [Concomitant]
     Active Substance: INSULIN NOS
  11. GASTROINTESTINAL DRUGS [Concomitant]
     Indication: PROPHYLAXIS

REACTIONS (3)
  - Asthenia [Not Recovered/Not Resolved]
  - Atrial fibrillation [Recovering/Resolving]
  - Cardiac failure [Recovering/Resolving]

NARRATIVE: CASE EVENT DATE: 20140527
